FAERS Safety Report 4842086-6 (Version None)
Quarter: 2005Q4

REPORT INFORMATION
  Report Type: 
  Country: None (occurrence: None)
  Receive Date: 20051130
  Receipt Date: 20050627
  Transmission Date: 20060501
  Serious: Yes (Hospitalization, Other)
  Sender: FDA-Public Use
  Company Number: US-NOVOPROD-245134

PATIENT
  Age: 14 Year
  Sex: Female
  Weight: 38 kg

DRUGS (3)
  1. NORDITROPIN CARTRIDGES [Suspect]
     Indication: BODY HEIGHT BELOW NORMAL
     Dosage: 2 MG, QD
     Dates: start: 20021031, end: 20040708
  2. CONCERTA [Concomitant]
     Indication: ILL-DEFINED DISORDER
     Dosage: 18 MG, MONDAY THROUGH FRIDAY
     Dates: end: 20040708
  3. LUPRON [Concomitant]
     Indication: ILL-DEFINED DISORDER
     Dosage: 15 MG, Q 4 WEEKS
     Dates: start: 20030515, end: 20040708

REACTIONS (2)
  - CONCOMITANT DISEASE PROGRESSION [None]
  - SCOLIOSIS [None]
